FAERS Safety Report 25891428 (Version 1)
Quarter: 2025Q4

REPORT INFORMATION
  Report Type: Spontaneous
  Country: BR (occurrence: BR)
  Receive Date: 20251007
  Receipt Date: 20251007
  Transmission Date: 20260117
  Serious: Yes (Other)
  Sender: SANDOZ
  Company Number: BR-SANDOZ-SDZ2025BR073071

PATIENT

DRUGS (1)
  1. BUDESONIDE\FORMOTEROL FUMARATE [Suspect]
     Active Substance: BUDESONIDE\FORMOTEROL FUMARATE
     Indication: Asthma
     Dosage: UNK,STRENGTH(12+400  MCG)
     Route: 055

REACTIONS (4)
  - Asthmatic crisis [Unknown]
  - Allergic bronchitis [Unknown]
  - Product availability issue [Unknown]
  - Product substitution issue [Unknown]
